FAERS Safety Report 10241799 (Version 1)
Quarter: 2014Q2

REPORT INFORMATION
  Report Type: Spontaneous
  Country: US (occurrence: US)
  Receive Date: 20140617
  Receipt Date: 20140617
  Transmission Date: 20141212
  Serious: No
  Sender: FDA-Public Use
  Company Number: US-009507513-1405USA002314

PATIENT
  Age: 48 Year
  Sex: Female
  Weight: 62.59 kg

DRUGS (6)
  1. CLARITIN-D-12 [Suspect]
     Indication: SEASONAL ALLERGY
     Dosage: 5 MG, Q12H
     Route: 048
     Dates: start: 20140427, end: 20140428
  2. CLARITIN-D-12 [Suspect]
     Indication: RESPIRATORY TRACT CONGESTION
  3. ASCORBIC ACID [Concomitant]
     Indication: PRODUCT USED FOR UNKNOWN INDICATION
     Dosage: UNK, UNKNOWN
  4. CENTRUM ULTRA WOMENS [Concomitant]
     Indication: PRODUCT USED FOR UNKNOWN INDICATION
     Dosage: UNK, UNKNOWN
  5. BIOTIN [Concomitant]
     Indication: PRODUCT USED FOR UNKNOWN INDICATION
     Dosage: UNK, UNKNOWN
  6. VITAMIN E [Concomitant]
     Indication: PRODUCT USED FOR UNKNOWN INDICATION
     Dosage: UNK, UNKNOWN

REACTIONS (4)
  - Panic attack [Recovered/Resolved]
  - Heart rate increased [Recovered/Resolved]
  - Nervousness [Recovered/Resolved]
  - Pruritus [Recovered/Resolved]
